FAERS Safety Report 24245999 (Version 1)
Quarter: 2024Q3

REPORT INFORMATION
  Report Type: Spontaneous
  Country: US (occurrence: US)
  Receive Date: 20240824
  Receipt Date: 20240824
  Transmission Date: 20241016
  Serious: No
  Sender: ABBVIE
  Company Number: US-ABBVIE-5890083

PATIENT
  Age: 70 Year
  Sex: Male

DRUGS (3)
  1. DURYSTA [Suspect]
     Active Substance: BIMATOPROST
     Indication: Ocular hypertension
     Route: 047
     Dates: start: 20240404, end: 20240628
  2. DURYSTA [Suspect]
     Active Substance: BIMATOPROST
     Indication: Exfoliation glaucoma
  3. DURYSTA [Suspect]
     Active Substance: BIMATOPROST
     Indication: Open angle glaucoma

REACTIONS (3)
  - Vision blurred [Recovered/Resolved]
  - Ocular discomfort [Recovered/Resolved]
  - Eye complication associated with device [Recovered/Resolved]

NARRATIVE: CASE EVENT DATE: 20240601
